FAERS Safety Report 19955732 (Version 5)
Quarter: 2022Q4

REPORT INFORMATION
  Report Type: Spontaneous
  Country: JP (occurrence: JP)
  Receive Date: 20211014
  Receipt Date: 20221108
  Transmission Date: 20230112
  Serious: No
  Sender: FDA-Public Use
  Company Number: JP-NOVARTISPH-NVSJ2021JP016812

PATIENT
  Sex: Female
  Weight: 45 kg

DRUGS (4)
  1. TAFINLAR [Suspect]
     Active Substance: DABRAFENIB MESYLATE
     Indication: Non-small cell lung cancer
     Dosage: 150 MG, BID
     Route: 048
     Dates: start: 20211008, end: 20211010
  2. TAFINLAR [Suspect]
     Active Substance: DABRAFENIB MESYLATE
     Indication: Lung neoplasm malignant
     Dosage: 100 MG, BID
     Route: 048
     Dates: start: 20211021, end: 20211027
  3. MEKINIST [Suspect]
     Active Substance: TRAMETINIB DIMETHYL SULFOXIDE
     Indication: Non-small cell lung cancer
     Dosage: 2 MG, QD
     Route: 048
     Dates: start: 20211008, end: 20211010
  4. MEKINIST [Suspect]
     Active Substance: TRAMETINIB DIMETHYL SULFOXIDE
     Indication: Lung neoplasm malignant
     Dosage: 1.5 MG, QD
     Route: 048
     Dates: start: 20211022, end: 20211027

REACTIONS (4)
  - Haematuria [Recovering/Resolving]
  - Urinary casts [Unknown]
  - Pyrexia [Recovered/Resolved]
  - Nausea [Recovered/Resolved]

NARRATIVE: CASE EVENT DATE: 20211009
